FAERS Safety Report 4732596-4 (Version None)
Quarter: 2005Q3

REPORT INFORMATION
  Report Type: 
  Country: None (occurrence: None)
  Receive Date: 20050803
  Receipt Date: 20050722
  Transmission Date: 20060218
  Serious: Yes (Hospitalization)
  Sender: FDA-Public Use
  Company Number: FR-JNJFOC-20050704971

PATIENT
  Sex: Male

DRUGS (3)
  1. REMICADE [Suspect]
     Indication: SPONDYLOARTHROPATHY
     Route: 042
  2. REMICADE [Suspect]
     Indication: RHEUMATOID ARTHRITIS
     Route: 042
  3. CORTANCYL [Concomitant]
     Route: 065
     Dates: start: 20020101

REACTIONS (6)
  - CAPNOCYTOPHAGIA INFECTION [None]
  - HYPOTENSION [None]
  - HYPOXIA [None]
  - PNEUMONIA PRIMARY ATYPICAL [None]
  - SEPTIC SHOCK [None]
  - WHITE BLOOD CELL COUNT ABNORMAL [None]
